FAERS Safety Report 7904454-5 (Version None)
Quarter: 2011Q4

REPORT INFORMATION
  Report Type: 
  Country: None (occurrence: None)
  Receive Date: 20111109
  Receipt Date: 20111102
  Transmission Date: 20120403
  Serious: Yes (Other)
  Sender: FDA-Public Use
  Company Number: US-ABBOTT-11P-163-0870966-00

PATIENT
  Sex: Female
  Weight: 55.388 kg

DRUGS (5)
  1. ADVAIR DISKUS 100/50 [Concomitant]
     Indication: ASTHMA
     Dosage: INHALER PRN EVERY 12 HOURS
  2. CLARITIN [Concomitant]
     Indication: COUGH
  3. CLARITIN [Concomitant]
     Indication: EYE PRURITUS
  4. HUMIRA [Suspect]
     Indication: RHEUMATOID ARTHRITIS
     Dates: start: 20060101
  5. CLARITIN [Concomitant]
     Indication: MULTIPLE ALLERGIES

REACTIONS (5)
  - BUNION [None]
  - NEOPLASM MALIGNANT [None]
  - CYST [None]
  - PNEUMONIA [None]
  - LUNG DISORDER [None]
